FAERS Safety Report 18316943 (Version 1)
Quarter: 2020Q3

REPORT INFORMATION
  Report Type: Report from Study
  Country: None (occurrence: US)
  Receive Date: 20200928
  Receipt Date: 20200928
  Transmission Date: 20201103
  Serious: Yes (Hospitalization, Other)
  Sender: FDA-Public Use
  Company Number: US-ABBVIE-20K-163-3494656-00

PATIENT
  Age: 73 Year
  Sex: Male
  Weight: 87.17 kg

DRUGS (9)
  1. HUMIRA [Suspect]
     Active Substance: ADALIMUMAB
     Route: 058
     Dates: start: 202009
  2. NORCO [Concomitant]
     Active Substance: ACETAMINOPHEN\HYDROCODONE BITARTRATE
     Indication: PAIN
  3. PREDNISONE. [Concomitant]
     Active Substance: PREDNISONE
     Indication: ACUTE FEBRILE NEUTROPHILIC DERMATOSIS
  4. HUMIRA [Suspect]
     Active Substance: ADALIMUMAB
     Indication: RHEUMATOID ARTHRITIS
     Route: 058
     Dates: start: 2018
  5. CALCIUM VITAMINE D3 [Concomitant]
     Active Substance: CALCIUM\CHOLECALCIFEROL
     Indication: PRODUCT USED FOR UNKNOWN INDICATION
  6. ASPIRIN. [Concomitant]
     Active Substance: ASPIRIN
     Indication: PRODUCT USED FOR UNKNOWN INDICATION
  7. HUMIRA [Suspect]
     Active Substance: ADALIMUMAB
     Indication: ACUTE FEBRILE NEUTROPHILIC DERMATOSIS
     Route: 058
     Dates: start: 201912, end: 202006
  8. SULFAMETHOXAZOLE [Concomitant]
     Active Substance: SULFAMETHOXAZOLE
     Indication: LUNG DISORDER
  9. FOLIC ACID. [Concomitant]
     Active Substance: FOLIC ACID
     Indication: ACUTE FEBRILE NEUTROPHILIC DERMATOSIS

REACTIONS (3)
  - Polyp [Recovering/Resolving]
  - Abscess [Recovering/Resolving]
  - Acute febrile neutrophilic dermatosis [Not Recovered/Not Resolved]

NARRATIVE: CASE EVENT DATE: 202006
